FAERS Safety Report 21258033 (Version 3)
Quarter: 2022Q4

REPORT INFORMATION
  Report Type: Spontaneous
  Country: PR (occurrence: PR)
  Receive Date: 20220826
  Receipt Date: 20221003
  Transmission Date: 20230112
  Serious: No
  Sender: FDA-Public Use
  Company Number: PR-PFIZER INC-202201053692

PATIENT
  Age: 11 Year
  Sex: Female
  Weight: 44.45 kg

DRUGS (1)
  1. GENOTROPIN [Suspect]
     Active Substance: SOMATROPIN
     Dosage: 2.8 MG, 1X/DAY (TAKES THE MEDICATION MONDAY-SATURDAY, ONCE A DAY BEFORE BED, INJECTION WITH THE PEN)
     Dates: start: 202203

REACTIONS (2)
  - Needle issue [Unknown]
  - Drug dose omission by device [Unknown]

NARRATIVE: CASE EVENT DATE: 20220801
